FAERS Safety Report 16342598 (Version 1)
Quarter: 2019Q2

REPORT INFORMATION
  Report Type: Spontaneous
  Country: US (occurrence: US)
  Receive Date: 20190522
  Receipt Date: 20190522
  Transmission Date: 20190711
  Serious: No
  Sender: FDA-Public Use
  Company Number: US-009507513-1904USA011835

PATIENT
  Age: 26 Year
  Sex: Female

DRUGS (12)
  1. RIFAMPIN. [Concomitant]
     Active Substance: RIFAMPIN
     Indication: MENINGITIS
     Dosage: UNK
     Dates: start: 2016
  2. RIFAMPIN. [Concomitant]
     Active Substance: RIFAMPIN
     Indication: PROPIONIBACTERIUM INFECTION
  3. PRIMAXIN IV [Suspect]
     Active Substance: CILASTATIN SODIUM\IMIPENEM
     Indication: PROPIONIBACTERIUM INFECTION
  4. PRIMAXIN IV [Suspect]
     Active Substance: CILASTATIN SODIUM\IMIPENEM
     Indication: STAPHYLOCOCCAL INFECTION
  5. AMIKACIN. [Concomitant]
     Active Substance: AMIKACIN
     Indication: MENINGITIS
     Dosage: UNK
     Dates: start: 2016
  6. RIFAMPIN. [Concomitant]
     Active Substance: RIFAMPIN
     Indication: STAPHYLOCOCCAL INFECTION
  7. PRIMAXIN IV [Suspect]
     Active Substance: CILASTATIN SODIUM\IMIPENEM
     Indication: MYCOBACTERIUM FORTUITUM INFECTION
     Dosage: UNK
     Route: 042
     Dates: start: 2016
  8. RIFAMPIN. [Concomitant]
     Active Substance: RIFAMPIN
     Indication: MYCOBACTERIUM FORTUITUM INFECTION
  9. AMIKACIN. [Concomitant]
     Active Substance: AMIKACIN
     Indication: MENINGITIS
  10. AMIKACIN. [Concomitant]
     Active Substance: AMIKACIN
     Indication: PROPIONIBACTERIUM INFECTION
  11. PRIMAXIN IV [Suspect]
     Active Substance: CILASTATIN SODIUM\IMIPENEM
     Indication: MENINGITIS
  12. AMIKACIN. [Concomitant]
     Active Substance: AMIKACIN
     Indication: STAPHYLOCOCCAL INFECTION

REACTIONS (1)
  - Off label use [Unknown]

NARRATIVE: CASE EVENT DATE: 2016
